FAERS Safety Report 9458531 (Version 3)
Quarter: 2013Q4

REPORT INFORMATION
  Report Type: Report from Study
  Country: ES (occurrence: ES)
  Receive Date: 20130814
  Receipt Date: 20131126
  Transmission Date: 20140711
  Serious: Yes (Other)
  Sender: FDA-Public Use
  Company Number: ES-ROCHE-1260276

PATIENT
  Age: 48 Year
  Sex: Male
  Weight: 60 kg

DRUGS (8)
  1. PEG-INTERFERON ALFA 2A [Suspect]
     Indication: HEPATITIS C
     Route: 058
     Dates: start: 20120528, end: 201207
  2. PEG-INTERFERON ALFA 2A [Suspect]
     Route: 058
     Dates: start: 20120730, end: 20120813
  3. PEG-INTERFERON ALFA 2A [Suspect]
     Route: 058
     Dates: start: 20120813, end: 20130428
  4. RIBAVIRIN [Suspect]
     Indication: HEPATITIS C
     Route: 048
     Dates: start: 20120528, end: 201207
  5. RIBAVIRIN [Suspect]
     Route: 048
     Dates: start: 20120730, end: 20120807
  6. RIBAVIRIN [Suspect]
     Route: 048
     Dates: start: 20120807, end: 20130428
  7. BOCEPREVIR [Suspect]
     Indication: HEPATITIS C
     Route: 048
     Dates: start: 20120625, end: 20130203
  8. FOLIC ACID [Concomitant]
     Route: 065
     Dates: start: 20120702

REACTIONS (1)
  - Pancytopenia [Recovered/Resolved]
